FAERS Safety Report 14766606 (Version 1)
Quarter: 2018Q2

REPORT INFORMATION
  Report Type: Spontaneous
  Country: US (occurrence: US)
  Receive Date: 20180416
  Receipt Date: 20180416
  Transmission Date: 20180711
  Serious: No
  Sender: FDA-Public Use
  Company Number: US-BIOGEN-2018BI00553447

PATIENT
  Sex: Female

DRUGS (1)
  1. TECFIDERA [Suspect]
     Active Substance: DIMETHYL FUMARATE
     Indication: MULTIPLE SCLEROSIS
     Route: 065
     Dates: start: 20130429, end: 20130522

REACTIONS (6)
  - Dyspepsia [Unknown]
  - Hot flush [Unknown]
  - Flushing [Unknown]
  - Neuropathy peripheral [Unknown]
  - Defaecation urgency [Unknown]
  - Drug dose omission [Unknown]
